FAERS Safety Report 8694727 (Version 2)
Quarter: 2012Q4

REPORT INFORMATION
  Report Type: Report from Study
  Country: JP (occurrence: JP)
  Receive Date: 20120731
  Receipt Date: 20121206
  Transmission Date: 20130627
  Serious: Yes (Hospitalization, Other)
  Sender: FDA-Public Use
  Company Number: JP-009507513-2012SP022480

PATIENT
  Age: 63 Year
  Sex: Female
  Weight: 47 kg

DRUGS (21)
  1. PEGINTERFERON ALFA-2B [Suspect]
     Indication: HEPATITIS C
     Dosage: 80 Microgram per kilogram, qw
     Route: 051
     Dates: start: 20120117, end: 20120201
  2. PEGINTERFERON ALFA-2B [Suspect]
     Dosage: 50 Microgram per kilogram, qw
     Route: 051
     Dates: start: 20120208, end: 20120215
  3. PEGINTERFERON ALFA-2B [Suspect]
     Dosage: 1.5 Microgram per kilogram, qw
     Route: 051
     Dates: start: 20120229, end: 20120415
  4. PEGINTERFERON ALFA-2B [Suspect]
     Dosage: 1 Microgram per kilogram, qw
     Route: 051
     Dates: start: 20120416, end: 20120430
  5. PEGINTERFERON ALFA-2B [Suspect]
     Dosage: 1.5 Microgram per kilogram, qw
     Route: 051
     Dates: start: 20120501, end: 20120625
  6. REBETOL [Suspect]
     Indication: HEPATITIS C
     Dosage: 600 mg, QD
     Route: 048
     Dates: start: 20120117, end: 20120207
  7. REBETOL [Suspect]
     Dosage: 400 mg, qd
     Route: 048
     Dates: start: 20120208, end: 20120214
  8. REBETOL [Suspect]
     Dosage: 600 mg, qd
     Route: 048
     Dates: start: 20120215, end: 20120229
  9. REBETOL [Suspect]
     Dosage: 200 mg, QD
     Route: 048
     Dates: start: 20120229, end: 20120312
  10. REBETOL [Suspect]
     Dosage: 400 mg, qd
     Route: 048
     Dates: start: 20120313, end: 20120408
  11. REBETOL [Suspect]
     Dosage: 200 mg, qd
     Route: 048
     Dates: start: 20120409, end: 20120415
  12. REBETOL [Suspect]
     Dosage: 200 mg, qd
     Route: 048
     Dates: start: 20120501, end: 20120506
  13. REBETOL [Suspect]
     Dosage: 400 mg, qd
     Route: 048
     Dates: start: 20120507, end: 20120513
  14. REBETOL [Suspect]
     Dosage: 600 mg, qd
     Route: 048
     Dates: start: 20120514, end: 20120603
  15. REBETOL [Suspect]
     Dosage: 400 mg, qd
     Route: 048
     Dates: start: 20120604, end: 20120701
  16. TELAVIC [Suspect]
     Indication: HEPATITIS C
     Dosage: 2250 mg, qd
     Route: 048
     Dates: start: 20120117, end: 20120207
  17. TELAVIC [Suspect]
     Dosage: 1500 mg, qd
     Route: 048
     Dates: start: 20120208, end: 20120214
  18. TELAVIC [Suspect]
     Dosage: 2250 mg, qd
     Route: 048
     Dates: start: 20120215, end: 20120229
  19. TELAVIC [Suspect]
     Dosage: 1500 mg, qd
     Route: 048
     Dates: start: 20120229, end: 20120415
  20. PAXIL [Suspect]
     Indication: ADVERSE EVENT
     Dosage: 30 mg, qd
     Route: 048
     Dates: start: 20120201
  21. LOXONIN [Concomitant]
     Indication: PROPHYLAXIS
     Dosage: UPDATE(11JUN2012)
     Route: 048
     Dates: start: 20120229, end: 20120422

REACTIONS (15)
  - Anaemia [Recovering/Resolving]
  - Malaise [Recovering/Resolving]
  - Decreased appetite [None]
  - Blood uric acid increased [None]
  - Platelet count decreased [None]
  - Depression [None]
  - Insomnia [None]
  - Chills [None]
  - Blood creatinine increased [None]
  - Irritability [None]
  - Gait disturbance [None]
  - Constipation [None]
  - Anxiety [None]
  - Rhinitis allergic [None]
  - Stomatitis [None]
